FAERS Safety Report 7533652-8 (Version None)
Quarter: 2011Q2

REPORT INFORMATION
  Report Type: 
  Country: None (occurrence: None)
  Receive Date: 20110608
  Receipt Date: 20060405
  Transmission Date: 20111010
  Serious: Yes (Other)
  Sender: FDA-Public Use
  Company Number: PHEH2006US00863

PATIENT
  Sex: Male

DRUGS (18)
  1. METOCLOPRAMIDE [Concomitant]
     Dosage: 20 MG, UNK
     Dates: start: 20051031, end: 20051121
  2. ACETAMINOPHEN [Concomitant]
     Dosage: 650 MG, UNK
     Route: 048
     Dates: start: 20041004, end: 20041206
  3. DARBEPOETIN ALFA [Concomitant]
     Dosage: 400 MEQ, UNK
     Route: 058
     Dates: start: 20050328, end: 20050509
  4. ONDANSETRON [Concomitant]
     Dosage: 16 MG, UNK
     Dates: start: 20040823, end: 20050307
  5. ZOLOFT [Concomitant]
     Indication: DEPRESSION
     Dosage: 50 MG, QD
     Route: 048
  6. CIMETIDINE [Concomitant]
     Dosage: 300 MG, UNK
     Dates: start: 20040829, end: 20041229
  7. PALONOSETRON [Concomitant]
     Dosage: 0.25 MG, UNK
     Dates: start: 20050328, end: 20051010
  8. ZOMETA [Suspect]
     Indication: METASTASES TO BONE
     Dosage: 4 MG EVERY 4 WEEKS
     Dates: start: 20040903
  9. NEURONTIN [Concomitant]
     Indication: NEUROPATHY PERIPHERAL
     Dosage: 600 MG, TID
     Route: 048
  10. CYANOCOBALAMIN [Concomitant]
     Dosage: 1000 MEQ, UNK
     Dates: start: 20050328, end: 20051031
  11. DIPHENHYDRAMINE HCL [Concomitant]
     Dosage: 50 MG, UNK
     Dates: start: 20040823, end: 20041229
  12. CARBOPLATIN [Concomitant]
     Dosage: 926 MG, UNK
     Dates: start: 20040823, end: 20041206
  13. DEXAMETHASONE [Concomitant]
     Dates: start: 20040823, end: 20051121
  14. PACLITAXEL [Concomitant]
     Dosage: 430 MG, UNK
     Dates: start: 20040823, end: 20041229
  15. ALIMTA [Concomitant]
     Dosage: 500 MG/M2 EVERY 3 WEEKS
     Dates: start: 20050117, end: 20051128
  16. LORAZEPAM [Concomitant]
     Dosage: 1 MG, UNK
     Dates: start: 20051031, end: 20051129
  17. PANTOPRAZOLE [Concomitant]
     Dosage: 40 MG, UNK
     Route: 048
     Dates: end: 20050328
  18. DRUG THERAPY NOS [Concomitant]
     Dosage: ANTIBODY THERAPY 275.5 MG, UNK
     Dates: start: 20040824, end: 20041229

REACTIONS (6)
  - ASCITES [None]
  - ABDOMINAL PAIN [None]
  - PLEURAL EFFUSION [None]
  - INTESTINAL INFARCTION [None]
  - PERICARDIAL EFFUSION [None]
  - METASTASES TO PERITONEUM [None]
